FAERS Safety Report 4551101-9 (Version None)
Quarter: 2005Q1

REPORT INFORMATION
  Report Type: 
  Country: None (occurrence: None)
  Receive Date: 20050107
  Receipt Date: 20041228
  Transmission Date: 20050727
  Serious: Yes (Other)
  Sender: FDA-Public Use
  Company Number: HQWYE280329DEC04

PATIENT
  Age: 90 Year
  Sex: Male
  Weight: 72.64 kg

DRUGS (2)
  1. CORDARONE [Suspect]
     Indication: HYPERTENSION
     Dosage: UNSPECIFIED, ORAL
     Route: 048
     Dates: start: 20030601, end: 20040301
  2. TOPROL-XL [Concomitant]

REACTIONS (6)
  - INSOMNIA [None]
  - PHOTOSENSITIVITY REACTION [None]
  - RASH MACULO-PAPULAR [None]
  - SUICIDAL IDEATION [None]
  - TEMPERATURE INTOLERANCE [None]
  - THERAPY NON-RESPONDER [None]
